FAERS Safety Report 25932619 (Version 1)
Quarter: 2025Q4

REPORT INFORMATION
  Report Type: Report from Study
  Country: US (occurrence: US)
  Receive Date: 20251017
  Receipt Date: 20251017
  Transmission Date: 20260117
  Serious: Yes (Other)
  Sender: CHIESI
  Company Number: US-CHIESI-2025CHF00722

PATIENT
  Sex: Male
  Weight: 10.301 kg

DRUGS (1)
  1. BIRCH BARK\HERBALS [Suspect]
     Active Substance: BIRCH BARK\HERBALS
     Indication: Epidermolysis bullosa
     Dosage: UNK, PRN
     Route: 061
     Dates: start: 20241106

REACTIONS (8)
  - Wound decomposition [Recovered/Resolved]
  - Application site vesicles [Recovering/Resolving]
  - Onychomadesis [Not Recovered/Not Resolved]
  - Illness [Recovering/Resolving]
  - Wound dehiscence [Not Recovered/Not Resolved]
  - Wound complication [Recovered/Resolved]
  - Drug ineffective [Not Recovered/Not Resolved]
  - Inflammation of wound [Recovered/Resolved]

NARRATIVE: CASE EVENT DATE: 20250101
